FAERS Safety Report 8962806 (Version 1)
Quarter: 2012Q4

REPORT INFORMATION
  Report Type: 
  Country: NL (occurrence: NL)
  Receive Date: 20121214
  Receipt Date: 20121214
  Transmission Date: 20130627
  Serious: Yes (Other)
  Sender: FDA-Public Use
  Company Number: NL-PFIZER INC-2012312612

PATIENT
  Age: 53 Year
  Sex: Male
  Weight: 84 kg

DRUGS (8)
  1. LIPITOR [Suspect]
     Dosage: 10 mg, 1x/day
     Dates: start: 1999, end: 2011
  2. SIMVASTATIN [Suspect]
     Dosage: 5 mg, 1x/day
     Dates: start: 1999, end: 2011
  3. ZOCOR [Suspect]
     Dosage: 10 mg, 1x/day
     Dates: start: 1999, end: 2002
  4. ZOCOR [Suspect]
     Dosage: 10 mg, 1x/day
     Dates: end: 2011
  5. ROSUVASTATIN [Suspect]
     Dosage: 5 mg, 1x/day
     Dates: start: 1999, end: 2011
  6. CRESTOR [Suspect]
     Dosage: 5 mg, 1x/day
     Dates: start: 1999, end: 2011
  7. EZETROL [Suspect]
     Dosage: 10 mg, 1x/day
     Dates: start: 1999, end: 2011
  8. BEZALIP [Suspect]
     Dosage: 400 mg, 1x/day
     Dates: start: 1999, end: 2011

REACTIONS (3)
  - Tendonitis [Recovered/Resolved]
  - Temporal arteritis [Unknown]
  - Cardiac failure [Unknown]
